FAERS Safety Report 8163860-7 (Version None)
Quarter: 2012Q1

REPORT INFORMATION
  Report Type: 
  Country: None (occurrence: None)
  Receive Date: 20120224
  Receipt Date: 20120222
  Transmission Date: 20120608
  Serious: Yes (Life-Threatening, Hospitalization, Disabling, Other)
  Sender: FDA-Public Use
  Company Number: PHEH2012US004468

PATIENT
  Sex: Male
  Weight: 28.7 kg

DRUGS (7)
  1. ACETAMINOPHEN [Concomitant]
     Dosage: 400 MG, Q6H
     Route: 048
  2. EXJADE [Suspect]
     Indication: IRON OVERLOAD
     Dosage: 250 MG DAILY
     Route: 048
     Dates: start: 20071213
  3. EXJADE [Suspect]
     Dosage: 1000 MG, QOD
     Route: 048
  4. ZANTAC [Concomitant]
     Indication: ABDOMINAL DISCOMFORT
     Dosage: 50 MG, BID
     Route: 048
  5. EXJADE [Suspect]
     Dosage: 750 MG, QOD
     Route: 048
  6. KEPPRA [Concomitant]
     Indication: CONVULSION
     Dosage: 100 MG, BID
     Route: 048
  7. MEGACE [Concomitant]
     Dosage: 40 MG, BID
     Route: 048

REACTIONS (1)
  - CEREBROVASCULAR ACCIDENT [None]
